FAERS Safety Report 15979685 (Version 1)
Quarter: 2019Q1

REPORT INFORMATION
  Report Type: Spontaneous
  Country: US (occurrence: US)
  Receive Date: 20190217
  Receipt Date: 20190217
  Transmission Date: 20190418
  Serious: Yes (Hospitalization, Disabling)
  Sender: FDA-Public Use
  Company Number: None

PATIENT
  Age: 77 Year
  Sex: Female
  Weight: 74.4 kg

DRUGS (20)
  1. LORATADINE 10MG [Concomitant]
     Active Substance: LORATADINE
     Dates: start: 20181123, end: 20181124
  2. CALCIUM CARBONATE 400MG CA [Concomitant]
     Dates: start: 20181122, end: 20181124
  3. KCL 20 MEQ TABLETS [Concomitant]
     Dates: start: 20181123, end: 20181123
  4. CYANCOBALAMIN 1000 MCG [Concomitant]
     Dates: start: 20181123, end: 20181123
  5. BUMETANIDE 1 MG [Concomitant]
     Active Substance: BUMETANIDE
     Dates: start: 20181123, end: 20181123
  6. MAGNEISUM SULFATE 4G IV [Concomitant]
     Dates: start: 20181124, end: 20181124
  7. ACETAMINOPHEN 650 MG [Concomitant]
     Active Substance: ACETAMINOPHEN
     Dates: start: 20181122, end: 20181124
  8. KCL 20 MEQ IV [Concomitant]
     Dates: start: 20181122, end: 20181122
  9. CYCLOBENZAPRINE 5 MG [Concomitant]
     Active Substance: CYCLOBENZAPRINE HYDROCHLORIDE
     Dates: start: 20181123, end: 20181124
  10. SPIRONOLACTONE 12.5 MG [Concomitant]
     Dates: start: 20181123, end: 20181124
  11. ONDANSETRON 4MG [Concomitant]
     Active Substance: ONDANSETRON
     Dates: start: 20181122, end: 20181211
  12. INSULIN LISPRO [Concomitant]
     Active Substance: INSULIN LISPRO
     Dates: start: 20181122, end: 20181124
  13. PANTOPRAZOLE 40MG [Concomitant]
     Active Substance: PANTOPRAZOLE SODIUM
     Dates: start: 20181123, end: 20181123
  14. GLIMEPIRIDE 1 MG [Concomitant]
     Active Substance: GLIMEPIRIDE
     Dates: start: 20181123, end: 20181123
  15. DILTIAZEM 10MG IV [Concomitant]
     Dates: start: 20181124, end: 20181124
  16. TRAMADOL 50MG [Concomitant]
     Active Substance: TRAMADOL
     Dates: start: 20181122, end: 20181124
  17. SENNA-DOCUSATE 8.6-50MG [Concomitant]
     Dates: start: 20181122, end: 20181124
  18. FAMOTIDINE 20MG [Concomitant]
     Active Substance: FAMOTIDINE
     Dates: start: 20181123, end: 20181124
  19. APIXABAN [Suspect]
     Active Substance: APIXABAN
     Indication: ATRIAL FIBRILLATION
     Route: 048
     Dates: start: 20151101, end: 20181122
  20. HEPARIN [Suspect]
     Active Substance: HEPARIN SODIUM
     Indication: ATRIAL FIBRILLATION
     Dosage: ?          OTHER FREQUENCY:992 U/HR;?
     Route: 041
     Dates: start: 20181122, end: 20181124

REACTIONS (8)
  - Cardiac arrest [None]
  - Laboratory test interference [None]
  - Torsade de pointes [None]
  - Subdural haematoma [None]
  - Fall [None]
  - Head injury [None]
  - Syncope [None]
  - Atrial fibrillation [None]

NARRATIVE: CASE EVENT DATE: 20181124
